FAERS Safety Report 5425271-4 (Version None)
Quarter: 2007Q3

REPORT INFORMATION
  Report Type: 
  Country: None (occurrence: None)
  Receive Date: 20070824
  Receipt Date: 20070815
  Transmission Date: 20080115
  Serious: Yes (Hospitalization)
  Sender: FDA-Public Use
  Company Number: GB-PFIZER INC-2007058562

PATIENT
  Age: 29 Year
  Sex: Female

DRUGS (2)
  1. LYRICA [Suspect]
     Indication: PROCEDURAL PAIN
     Route: 048
  2. LYRICA [Suspect]
     Indication: PAIN

REACTIONS (1)
  - PSYCHOTIC DISORDER [None]
